FAERS Safety Report 5892401-X (Version None)
Quarter: 2008Q3

REPORT INFORMATION
  Report Type: 
  Country: None (occurrence: None)
  Receive Date: 20080919
  Receipt Date: 20080919
  Transmission Date: 20090109
  Serious: Yes (Life-Threatening)
  Sender: FDA-Public Use
  Company Number: None

PATIENT
  Sex: Male
  Weight: 104.3273 kg

DRUGS (1)
  1. ZETIA [Suspect]
     Indication: DYSLIPIDAEMIA
     Dosage: ONE DAILY PO
     Route: 048
     Dates: start: 20060910, end: 20080918

REACTIONS (1)
  - TONSIL CANCER [None]
